FAERS Safety Report 13333201 (Version 2)
Quarter: 2017Q1

REPORT INFORMATION
  Report Type: Spontaneous
  Country: DE (occurrence: DE)
  Receive Date: 20170314
  Receipt Date: 20170324
  Transmission Date: 20170428
  Serious: Yes (Hospitalization, Other)
  Sender: FDA-Public Use
  Company Number: DE-GLAXOSMITHKLINE-DE2017GSK033295

PATIENT
  Age: 36 Year
  Sex: Female
  Weight: 54 kg

DRUGS (3)
  1. VIGANTOLETTEN [Concomitant]
     Active Substance: CHOLECALCIFEROL
     Indication: SYSTEMIC LUPUS ERYTHEMATOSUS
     Dosage: 1000 IU, UNK
     Dates: start: 20170116
  2. PREDNISOLON [Concomitant]
     Active Substance: PREDNISOLONE
     Indication: SYSTEMIC LUPUS ERYTHEMATOSUS
     Dosage: 5 MG, UNK
     Dates: start: 20170116
  3. BENLYSTA [Suspect]
     Active Substance: BELIMUMAB
     Indication: SYSTEMIC LUPUS ERYTHEMATOSUS
     Dosage: 540 MG, Z
     Route: 042
     Dates: start: 20170220, end: 20170306

REACTIONS (8)
  - Erythema [Recovered/Resolved]
  - Diarrhoea [Recovered/Resolved]
  - Dermatitis contact [Recovered/Resolved]
  - Hypertensive crisis [Recovered/Resolved]
  - Headache [Recovered/Resolved]
  - Rash erythematous [Recovered/Resolved]
  - Nausea [Recovered/Resolved]
  - Vomiting [Recovered/Resolved]

NARRATIVE: CASE EVENT DATE: 201703
